FAERS Safety Report 19918547 (Version 1)
Quarter: 2021Q4

REPORT INFORMATION
  Report Type: Spontaneous
  Country: GB (occurrence: GB)
  Receive Date: 20211005
  Receipt Date: 20211005
  Transmission Date: 20220303
  Serious: Yes (Other)
  Sender: FDA-Public Use
  Company Number: GB-NOVARTISPH-NVSC2021GB222348

PATIENT
  Sex: Female

DRUGS (1)
  1. TEGRETOL [Suspect]
     Active Substance: CARBAMAZEPINE
     Indication: Product used for unknown indication
     Dosage: 900 MG, QD
     Route: 065

REACTIONS (3)
  - Cerebral cavernous malformation [Unknown]
  - Hepatic enzyme increased [Unknown]
  - Gamma-glutamyltransferase increased [Unknown]
